FAERS Safety Report 7608629-4 (Version None)
Quarter: 2011Q3

REPORT INFORMATION
  Report Type: 
  Country: None (occurrence: None)
  Receive Date: 20110714
  Receipt Date: 20110707
  Transmission Date: 20111222
  Serious: Yes (Death)
  Sender: FDA-Public Use
  Company Number: NL-GENZYME-CAMP-1001538

PATIENT

DRUGS (1)
  1. CAMPATH [Suspect]
     Indication: T-CELL DEPLETION
     Dosage: UNK
     Route: 065

REACTIONS (1)
  - DEATH [None]
